FAERS Safety Report 9394497 (Version 4)
Quarter: 2013Q4

REPORT INFORMATION
  Report Type: Report from Study
  Country: IL (occurrence: IL)
  Receive Date: 20130711
  Receipt Date: 20131101
  Transmission Date: 20140711
  Serious: Yes (Other)
  Sender: FDA-Public Use
  Company Number: PHHY2013IL073565

PATIENT
  Age: 50 Year
  Sex: Female
  Weight: 59 kg

DRUGS (2)
  1. TASIGNA [Suspect]
     Indication: CHRONIC MYELOID LEUKAEMIA
     Dosage: 150 MG
     Route: 048
     Dates: start: 201212, end: 201301
  2. TASIGNA [Suspect]
     Dosage: UNK
     Route: 048
     Dates: start: 20130219

REACTIONS (23)
  - Hypertension [Recovering/Resolving]
  - Ocular discomfort [Recovering/Resolving]
  - Incorrect drug administration duration [Unknown]
  - Increased appetite [Not Recovered/Not Resolved]
  - Ocular hyperaemia [Not Recovered/Not Resolved]
  - Alopecia [Not Recovered/Not Resolved]
  - Arthralgia [Not Recovered/Not Resolved]
  - Urticaria [Recovering/Resolving]
  - Eye irritation [Recovering/Resolving]
  - Headache [Not Recovered/Not Resolved]
  - Asthenia [Not Recovered/Not Resolved]
  - Insomnia [Unknown]
  - Local swelling [Recovering/Resolving]
  - Bone pain [Not Recovered/Not Resolved]
  - Eye pain [Recovering/Resolving]
  - Pain in extremity [Not Recovered/Not Resolved]
  - Rash [Not Recovered/Not Resolved]
  - Muscle spasms [Not Recovered/Not Resolved]
  - Flushing [Not Recovered/Not Resolved]
  - Pruritus generalised [Not Recovered/Not Resolved]
  - Abdominal pain [Not Recovered/Not Resolved]
  - Eye swelling [Recovering/Resolving]
  - Fatigue [Not Recovered/Not Resolved]
